FAERS Safety Report 18968948 (Version 1)
Quarter: 2021Q1

REPORT INFORMATION
  Report Type: Spontaneous
  Country: US (occurrence: US)
  Receive Date: 20210304
  Receipt Date: 20210304
  Transmission Date: 20210420
  Serious: No
  Sender: FDA-Public Use
  Company Number: US-VYERA PHARMACEUTICALS, LLC-2020VYE00015

PATIENT
  Age: 47 Year
  Sex: Male

DRUGS (14)
  1. DESCOVY [Concomitant]
     Active Substance: EMTRICITABINE\TENOFOVIR ALAFENAMIDE FUMARATE
  2. DARAPRIM [Suspect]
     Active Substance: PYRIMETHAMINE
     Indication: HIV INFECTION
     Dosage: 25 MG, 1X/DAY
     Route: 048
     Dates: start: 20200124
  3. SIMVASTATIN. [Concomitant]
     Active Substance: SIMVASTATIN
  4. FLUCONAZOLE. [Concomitant]
     Active Substance: FLUCONAZOLE
  5. LISINOPRIL. [Concomitant]
     Active Substance: LISINOPRIL
  6. SIMVASTATIN. [Concomitant]
     Active Substance: SIMVASTATIN
  7. PANTOPRAZOLE [Concomitant]
     Active Substance: PANTOPRAZOLE
  8. MONTELUKAST [Concomitant]
     Active Substance: MONTELUKAST SODIUM
  9. DILTIAZEM. [Concomitant]
     Active Substance: DILTIAZEM
  10. TIVICAY [Concomitant]
     Active Substance: DOLUTEGRAVIR SODIUM
  11. TRULICITY [Concomitant]
     Active Substance: DULAGLUTIDE
  12. IBU [Concomitant]
     Active Substance: IBUPROFEN
  13. ATOVAQUONE. [Concomitant]
     Active Substance: ATOVAQUONE
  14. LEUCOVOR [Concomitant]

REACTIONS (2)
  - Insomnia [Not Recovered/Not Resolved]
  - Off label use [Not Recovered/Not Resolved]

NARRATIVE: CASE EVENT DATE: 20200124
